FAERS Safety Report 23585224 (Version 1)
Quarter: 2024Q1

REPORT INFORMATION
  Report Type: Spontaneous
  Country: ES (occurrence: ES)
  Receive Date: 20240301
  Receipt Date: 20240301
  Transmission Date: 20240410
  Serious: Yes (Hospitalization, Other)
  Sender: FDA-Public Use
  Company Number: ES-Accord-410187

PATIENT
  Age: 71 Year
  Sex: Female

DRUGS (1)
  1. TACROLIMUS [Suspect]
     Active Substance: TACROLIMUS
     Indication: Immunosuppressant drug therapy
     Dates: start: 2020

REACTIONS (2)
  - Mediastinitis [Recovered/Resolved]
  - Rhodococcus infection [Recovered/Resolved]

NARRATIVE: CASE EVENT DATE: 20210501
